FAERS Safety Report 5171632-0 (Version None)
Quarter: 2006Q4

REPORT INFORMATION
  Report Type: 
  Country: None (occurrence: None)
  Receive Date: 20061213
  Receipt Date: 20061030
  Transmission Date: 20070319
  Serious: Yes (Death, Other)
  Sender: FDA-Public Use
  Company Number: JP-AVENTIS-200613393JP

PATIENT
  Sex: Male

DRUGS (3)
  1. TAXOTERE [Suspect]
     Indication: LUNG NEOPLASM MALIGNANT
     Route: 041
     Dates: start: 20061005, end: 20061005
  2. TAXOTERE [Suspect]
     Route: 041
     Dates: start: 20061019, end: 20061019
  3. WHOLE-BRAIN IRRADIATION [Concomitant]
     Dates: start: 20060928, end: 20060928

REACTIONS (2)
  - INTERSTITIAL LUNG DISEASE [None]
  - PNEUMONIA [None]
